FAERS Safety Report 6554758-6 (Version None)
Quarter: 2010Q1

REPORT INFORMATION
  Report Type: 
  Country: None (occurrence: None)
  Receive Date: 20100125
  Receipt Date: 20100118
  Transmission Date: 20100710
  Serious: Yes (Other)
  Sender: FDA-Public Use
  Company Number: 10TW001245

PATIENT
  Age: 47 Year
  Sex: Male
  Weight: 48.5 kg

DRUGS (3)
  1. VALPROIC ACID [Suspect]
     Indication: CONVULSION
  2. CEFTRIAXONE [Concomitant]
  3. VANCOMYCIN [Concomitant]

REACTIONS (16)
  - AGITATION [None]
  - BLOOD PRESSURE SYSTOLIC INCREASED [None]
  - BODY TEMPERATURE INCREASED [None]
  - CEREBRAL DISORDER [None]
  - CONDITION AGGRAVATED [None]
  - CONVULSION [None]
  - CSF GLUCOSE DECREASED [None]
  - CSF PROTEIN INCREASED [None]
  - DEAFNESS NEUROSENSORY [None]
  - EPILEPSY [None]
  - HEADACHE [None]
  - HEART RATE INCREASED [None]
  - MELAS SYNDROME [None]
  - MENINGOENCEPHALITIS BACTERIAL [None]
  - PYREXIA [None]
  - SPEECH DISORDER [None]
